FAERS Safety Report 9018509 (Version 1)
Quarter: 2013Q1

REPORT INFORMATION
  Report Type: Spontaneous
  Country: US (occurrence: US)
  Receive Date: 20130118
  Receipt Date: 20130118
  Transmission Date: 20140127
  Serious: Yes (Hospitalization)
  Sender: FDA-Public Use
  Company Number: US-BAYER-2013-005094

PATIENT
  Age: 25 Year
  Sex: Female
  Weight: 46.71 kg

DRUGS (13)
  1. YAZ [Suspect]
     Indication: POLYCYSTIC OVARIES
  2. YAZ [Suspect]
     Indication: ACNE
  3. YAZ [Suspect]
     Indication: HIRSUTISM
  4. GIANVI [Suspect]
  5. NUCYNTA [Concomitant]
     Dosage: 50 MG, EVERY 6 HOURS
  6. VERSED [Concomitant]
     Dosage: 4
     Route: 042
  7. FENTANYL [Concomitant]
     Dosage: 100
     Route: 042
  8. ROPIVACAINE [Concomitant]
     Dosage: 12 CC, UNK
  9. ROPIVACAINE [Concomitant]
     Dosage: 10 CC
  10. ROPIVACAINE [Concomitant]
     Dosage: 8 CC
  11. ANTIBIOTICS [Concomitant]
     Indication: PROPHYLAXIS
  12. PROMETHAZINE [Concomitant]
     Dosage: 25 MG, Q 6 H
     Route: 048
  13. SPIRONOLACTONE [Concomitant]
     Dosage: 50 MG, BID
     Route: 048

REACTIONS (1)
  - Deep vein thrombosis [None]
